FAERS Safety Report 10844125 (Version 1)
Quarter: 2015Q1

REPORT INFORMATION
  Report Type: Report from Study
  Country: US (occurrence: US)
  Receive Date: 20150220
  Receipt Date: 20150220
  Transmission Date: 20150721
  Serious: No
  Sender: FDA-Public Use
  Company Number: US-ABBVIE-14P-163-1272755-00

PATIENT
  Age: 54 Year
  Sex: Male

DRUGS (6)
  1. PRAVASTATIN [Concomitant]
     Active Substance: PRAVASTATIN\PRAVASTATIN SODIUM
     Indication: BLOOD CHOLESTEROL INCREASED
  2. GABAPENTIN. [Concomitant]
     Active Substance: GABAPENTIN
     Indication: PAIN
  3. EMSAM [Concomitant]
     Active Substance: SELEGILINE
     Indication: PAIN
  4. HUMIRA [Suspect]
     Active Substance: ADALIMUMAB
     Indication: PSORIATIC ARTHROPATHY
     Route: 065
     Dates: end: 201303
  5. HUMIRA [Suspect]
     Active Substance: ADALIMUMAB
     Indication: OSTEOARTHRITIS
     Dosage: RECEIVED 3 INJECTIONS
     Route: 065
     Dates: start: 20140702
  6. ANTI-INFLAMMATORY MEDICATIONS [Concomitant]
     Active Substance: UNSPECIFIED INGREDIENT
     Indication: INFLAMMATION

REACTIONS (5)
  - Injury associated with device [Recovered/Resolved]
  - Fear of injection [Unknown]
  - Inappropriate schedule of drug administration [Unknown]
  - Pain in extremity [Recovered/Resolved]
  - Wrong technique in drug usage process [Unknown]

NARRATIVE: CASE EVENT DATE: 20140702
